FAERS Safety Report 7019822-6 (Version None)
Quarter: 2010Q3

REPORT INFORMATION
  Report Type: 
  Country: None (occurrence: None)
  Receive Date: 20100922
  Receipt Date: 20100915
  Transmission Date: 20110219
  Serious: Yes (Other)
  Sender: FDA-Public Use
  Company Number: 013902

PATIENT
  Age: 56 Year
  Sex: Female

DRUGS (12)
  1. KEPPRA [Suspect]
     Indication: EPILEPSY
     Dosage: SEE IMAGE
     Route: 048
     Dates: start: 20090401
  2. KEPPRA [Suspect]
     Indication: PARTIAL SEIZURES
     Dosage: SEE IMAGE
     Route: 048
     Dates: start: 20090401
  3. KEPPRA [Suspect]
     Indication: EPILEPSY
     Dosage: SEE IMAGE
     Route: 048
     Dates: start: 20100101
  4. KEPPRA [Suspect]
     Indication: PARTIAL SEIZURES
     Dosage: SEE IMAGE
     Route: 048
     Dates: start: 20100101
  5. KEPPRA [Suspect]
     Indication: EPILEPSY
     Dosage: SEE IMAGE
     Route: 048
     Dates: start: 20100101
  6. KEPPRA [Suspect]
     Indication: PARTIAL SEIZURES
     Dosage: SEE IMAGE
     Route: 048
     Dates: start: 20100101
  7. KEPPRA [Suspect]
     Indication: EPILEPSY
     Dosage: SEE IMAGE
     Route: 048
     Dates: start: 20100101
  8. KEPPRA [Suspect]
     Indication: PARTIAL SEIZURES
     Dosage: SEE IMAGE
     Route: 048
     Dates: start: 20100101
  9. KEPPRA [Suspect]
     Indication: EPILEPSY
     Dosage: SEE IMAGE
     Route: 048
     Dates: start: 20100101
  10. KEPPRA [Suspect]
     Indication: PARTIAL SEIZURES
     Dosage: SEE IMAGE
     Route: 048
     Dates: start: 20100101
  11. KEPPRA [Suspect]
     Indication: EPILEPSY
     Dosage: SEE IMAGE
     Route: 048
     Dates: start: 20100101
  12. KEPPRA [Suspect]
     Indication: PARTIAL SEIZURES
     Dosage: SEE IMAGE
     Route: 048
     Dates: start: 20100101

REACTIONS (14)
  - DAYDREAMING [None]
  - DECREASED ACTIVITY [None]
  - DIZZINESS [None]
  - DRUG INEFFECTIVE [None]
  - DYSARTHRIA [None]
  - DYSPHEMIA [None]
  - FAECAL INCONTINENCE [None]
  - FALL [None]
  - INSOMNIA [None]
  - MALAISE [None]
  - PAIN [None]
  - PRODUCT QUALITY ISSUE [None]
  - URINARY INCONTINENCE [None]
  - WEIGHT INCREASED [None]
